FAERS Safety Report 20850354 (Version 1)
Quarter: 2022Q2

REPORT INFORMATION
  Report Type: Spontaneous
  Country: US (occurrence: US)
  Receive Date: 20220519
  Receipt Date: 20220519
  Transmission Date: 20220721
  Serious: Yes (Hospitalization)
  Sender: FDA-Public Use
  Company Number: US-BEXIMCO-2022BEX00029

PATIENT
  Sex: Male

DRUGS (20)
  1. BACLOFEN [Suspect]
     Active Substance: BACLOFEN
     Indication: Dystonia
     Dosage: 437.9 ?G, 1X/DAY
     Route: 037
     Dates: start: 202006
  2. BACLOFEN [Suspect]
     Active Substance: BACLOFEN
     Dosage: 745.2 ?G, 1X/DAY (INCREASED OVER NEXT COUPLE YEARS)
     Route: 037
  3. BACLOFEN [Suspect]
     Active Substance: BACLOFEN
     Dosage: 819.72, 1X/DAY
     Route: 037
  4. BACLOFEN [Suspect]
     Active Substance: BACLOFEN
     Dosage: 1100 ?G, 1X/DAY
     Route: 008
     Dates: start: 202001
  5. BACLOFEN [Suspect]
     Active Substance: BACLOFEN
     Dosage: 100 ?G, 1X/DAY
     Route: 008
     Dates: start: 202003
  6. BACLOFEN [Suspect]
     Active Substance: BACLOFEN
     Dosage: 100 ?G, 1X/DAY
     Route: 037
  7. BACLOFEN [Suspect]
     Active Substance: BACLOFEN
     Dosage: 275 ?G, 1X/DAY
     Route: 037
  8. BACLOFEN [Suspect]
     Active Substance: BACLOFEN
     Dosage: 375.4 ?G, 1X/DAY
     Route: 037
     Dates: start: 202004
  9. BACLOFEN [Suspect]
     Active Substance: BACLOFEN
     Dosage: UPTITRATED OVER A FEW MONTHS
     Route: 037
  10. BACLOFEN [Suspect]
     Active Substance: BACLOFEN
     Dosage: 230.2 ?G, 1X/DAY
     Route: 037
     Dates: start: 202007
  11. BACLOFEN [Suspect]
     Active Substance: BACLOFEN
     Dosage: 253.2 ?G, 1X/DAY
     Route: 037
  12. BACLOFEN [Suspect]
     Active Substance: BACLOFEN
     Dosage: 278.1 ?G, 1X/DAY
     Route: 037
  13. BACLOFEN [Suspect]
     Active Substance: BACLOFEN
     Dosage: DOWN-TITRATED TO 5-10% EVERY COUPLE OF DAYS
     Route: 037
  14. BACLOFEN [Suspect]
     Active Substance: BACLOFEN
     Dosage: 178.2 ?G, 1X/DAY
     Route: 037
     Dates: start: 202008
  15. BACLOFEN [Suspect]
     Active Substance: BACLOFEN
     Dosage: CONTINUED TO BE DOWN-TITRATED
     Route: 037
  16. BACLOFEN [Suspect]
     Active Substance: BACLOFEN
     Dosage: 150 ?G, 1X/DAY
     Route: 037
     Dates: start: 202010
  17. CARBIDOPA\LEVODOPA [Concomitant]
     Active Substance: CARBIDOPA\LEVODOPA
     Indication: Dystonia
     Route: 065
  18. LAMOTRIGINE [Concomitant]
     Active Substance: LAMOTRIGINE
     Indication: Bipolar disorder
     Route: 065
  19. LITHIUM [Concomitant]
     Active Substance: LITHIUM
     Indication: Bipolar disorder
     Route: 065
  20. QUETIAPINE [Concomitant]
     Active Substance: QUETIAPINE
     Indication: Bipolar disorder
     Route: 065

REACTIONS (2)
  - Incorrect route of product administration [Recovered/Resolved]
  - Mood altered [Recovering/Resolving]

NARRATIVE: CASE EVENT DATE: 20200101
